FAERS Safety Report 6046335-0 (Version None)
Quarter: 2009Q1

REPORT INFORMATION
  Report Type: 
  Country: None (occurrence: None)
  Receive Date: 20090121
  Receipt Date: 20090121
  Transmission Date: 20090719
  Serious: Yes (Hospitalization)
  Sender: FDA-Public Use
  Company Number: None

PATIENT
  Age: 61 Year
  Sex: Male
  Weight: 98 kg

DRUGS (1)
  1. BYETTA [Suspect]
     Indication: DIABETES MELLITUS
     Dosage: 5MCG DAILY SQ +/ - 3 MONTHS

REACTIONS (4)
  - ANOREXIA [None]
  - DIZZINESS POSTURAL [None]
  - PANCREATITIS [None]
  - POLYURIA [None]
